FAERS Safety Report 8774448 (Version 1)
Quarter: 2012Q4

REPORT INFORMATION
  Report Type: 
  Country: US (occurrence: US)
  Receive Date: 20120907
  Receipt Date: 20120907
  Transmission Date: 20130627
  Serious: No
  Sender: FDA-Public Use
  Company Number: US-PFIZER INC-2012218298

PATIENT
  Age: 60 Year
  Sex: Female
  Weight: 67.12 kg

DRUGS (7)
  1. NEURONTIN [Suspect]
     Indication: HERPES ZOSTER
     Dosage: 300 mg, 2x/day
     Route: 048
  2. DEXAMETHASONE [Concomitant]
     Dosage: UNK
  3. MULTIVITAMINS [Concomitant]
     Dosage: UNK
  4. CALCIUM [Concomitant]
     Dosage: UNK
  5. PREMPRO [Concomitant]
     Dosage: UNK
  6. CELEBREX [Concomitant]
     Dosage: UNK
  7. LYRICA [Concomitant]
     Dosage: UNK

REACTIONS (2)
  - Thinking abnormal [Recovered/Resolved]
  - Malaise [Recovered/Resolved]
